FAERS Safety Report 10285020 (Version 2)
Quarter: 2014Q1

REPORT INFORMATION
  Report Type: Spontaneous
  Country: US (occurrence: None)
  Receive Date: 20120709
  Receipt Date: 20130724
  Transmission Date: 20141002
  Serious: Yes (Other)
  Sender: FDA-Public Use
  Company Number: PHHY2011US36181

PATIENT
  Age: 65 Year
  Sex: Female

DRUGS (5)
  1. GLEEVEC [Suspect]
     Indication: CHRONIC MYELOID LEUKAEMIA
     Route: 048
     Dates: start: 20110419
  2. ADDERALL (AMFETAMINE ASPARTATE, AMFETAMINE SULFATE, DEXAMFETAMINE SACCHARATE, DEXAMFETAMINE SULFATE) [Concomitant]
  3. LOSARTAN (LOSARTAN) [Concomitant]
  4. POTASSIUM (POTASSIUM) [Concomitant]
  5. ANTIEMETICS (NO INGREDIENTS/SUBSTANCES) [Concomitant]

REACTIONS (8)
  - Hypertension [None]
  - Hypokalaemia [None]
  - Diarrhoea [None]
  - Muscle spasms [None]
  - Nausea [None]
  - Vomiting [None]
  - Malaise [None]
  - Panic attack [None]
